FAERS Safety Report 24045630 (Version 1)
Quarter: 2024Q3

REPORT INFORMATION
  Report Type: Report from Study
  Country: CA (occurrence: CA)
  Receive Date: 20240703
  Receipt Date: 20240703
  Transmission Date: 20241016
  Serious: Yes (Other)
  Sender: BIOCON
  Company Number: CA-BIOCON BIOLOGICS LIMITED-BBL2024004789

PATIENT

DRUGS (6)
  1. HULIO [Suspect]
     Active Substance: ADALIMUMAB-FKJP
     Indication: Hidradenitis
     Dosage: 40 MG, 1 EVERY 1 WEEKS
     Route: 058
  2. HULIO [Suspect]
     Active Substance: ADALIMUMAB-FKJP
     Dosage: UNK, QW
     Route: 058
  3. HULIO [Suspect]
     Active Substance: ADALIMUMAB-FKJP
     Dosage: 40 MG, 1 EVERY 1 WEEKS
     Route: 065
  4. HULIO [Suspect]
     Active Substance: ADALIMUMAB-FKJP
     Dosage: 40 MG, 1 EVERY 1 WEEKS
     Route: 058
  5. HULIO [Suspect]
     Active Substance: ADALIMUMAB-FKJP
     Dosage: 40 MG, 1 EVERY 1 WEEKS
     Route: 058
  6. HULIO [Suspect]
     Active Substance: ADALIMUMAB-FKJP
     Dosage: 40 MG, 1 EVERY 1 WEEKS
     Route: 058

REACTIONS (6)
  - Genital lesion [Unknown]
  - Shoulder fracture [Unknown]
  - Hand deformity [Unknown]
  - Rhinorrhoea [Unknown]
  - Dysphonia [Unknown]
  - Fall [Unknown]
